FAERS Safety Report 5960924-0 (Version None)
Quarter: 2008Q4

REPORT INFORMATION
  Report Type: 
  Country: None (occurrence: None)
  Receive Date: 20081119
  Receipt Date: 20081107
  Transmission Date: 20090506
  Serious: Yes (Hospitalization)
  Sender: FDA-Public Use
  Company Number: KADN20080381

PATIENT
  Sex: Female

DRUGS (2)
  1. KADIAN [Suspect]
     Indication: ARTHRALGIA
     Dosage: 1 IN 12 HR, ORAL
     Route: 048
     Dates: start: 20081104, end: 20081106
  2. KADIAN [Suspect]
     Indication: ARTHRALGIA
     Dosage: 1 IN 12 HR, ORAL
     Route: 048
     Dates: start: 20080807, end: 20081103

REACTIONS (3)
  - DRUG DISPENSING ERROR [None]
  - OVERDOSE [None]
  - SOMNOLENCE [None]
